FAERS Safety Report 5386242-X (Version None)
Quarter: 2007Q3

REPORT INFORMATION
  Report Type: 
  Country: None (occurrence: None)
  Receive Date: 20070713
  Receipt Date: 20070705
  Transmission Date: 20080115
  Serious: Yes (Death, Hospitalization)
  Sender: FDA-Public Use
  Company Number: PHBS2007AT11429

PATIENT
  Age: 65 Year
  Sex: Female

DRUGS (6)
  1. CYCLOSPORINE [Suspect]
     Indication: LIVER TRANSPLANT
     Route: 065
  2. STEROIDS NOS [Suspect]
     Indication: LIVER TRANSPLANT
     Route: 065
  3. INTERLEUKIN-2 RECEPTOR ANTAGONIST [Suspect]
     Indication: LIVER TRANSPLANT
  4. TACROLIMUS [Suspect]
     Indication: LIVER TRANSPLANT
  5. MYCOPHENOLATE MOFETIL [Suspect]
     Indication: LIVER TRANSPLANT
  6. GANCICLOVIR [Concomitant]
     Indication: CYTOMEGALOVIRUS INFECTION

REACTIONS (35)
  - ARTERIAL LIGATION [None]
  - ASCITES [None]
  - CHOLESTASIS [None]
  - COMPLICATIONS OF TRANSPLANT SURGERY [None]
  - COMPLICATIONS OF TRANSPLANTED LIVER [None]
  - CYST RUPTURE [None]
  - CYTOMEGALOVIRUS INFECTION [None]
  - DIARRHOEA [None]
  - ENTEROBACTER PNEUMONIA [None]
  - HAEMODIALYSIS [None]
  - HAEMORRHAGIC CYST [None]
  - HEPATIC ARTERY ANEURYSM [None]
  - HEPATIC EMBOLISATION [None]
  - HEPATIC FAILURE [None]
  - HERPES SIMPLEX [None]
  - HYPOVOLAEMIC SHOCK [None]
  - INFECTION [None]
  - LAPAROTOMY [None]
  - LIVER TRANSPLANT [None]
  - LUNG INFECTION PSEUDOMONAL [None]
  - LUNG INFILTRATION [None]
  - MULTI-ORGAN FAILURE [None]
  - NEPHRECTOMY [None]
  - PORTAL VEIN THROMBOSIS [None]
  - PSEUDALLESCHERIA INFECTION [None]
  - RENAL CYST [None]
  - RENAL FAILURE ACUTE [None]
  - SINUSITIS [None]
  - SPLENIC ABSCESS [None]
  - SPLENOMEGALY [None]
  - STAPHYLOCOCCAL SEPSIS [None]
  - SYSTEMIC MYCOSIS [None]
  - VENOUS INJURY [None]
  - WHITE BLOOD CELL COUNT DECREASED [None]
  - WOUND INFECTION [None]
